FAERS Safety Report 4820795-2 (Version None)
Quarter: 2005Q4

REPORT INFORMATION
  Report Type: 
  Country: None (occurrence: None)
  Receive Date: 20051104
  Receipt Date: 20051101
  Transmission Date: 20060501
  Serious: Yes (Other)
  Sender: FDA-Public Use
  Company Number: US-JNJFOC-20051100311

PATIENT
  Age: 29 Year
  Sex: Male

DRUGS (10)
  1. PANCREASE [Suspect]
     Indication: CYSTIC FIBROSIS
     Route: 048
  2. TOBRAMYCIN [Concomitant]
  3. CEFTAZIDIME [Concomitant]
  4. AZTREONAM [Concomitant]
  5. BUPROPION HCL [Concomitant]
  6. MAGNESIUM [Concomitant]
  7. LANSOPRAZOLE [Concomitant]
  8. ALBUTEROL [Concomitant]
     Route: 055
  9. DORNASE ALFA [Concomitant]
     Route: 055
  10. FLUTICASONE [Concomitant]

REACTIONS (1)
  - LARGE INTESTINAL ULCER [None]
